FAERS Safety Report 21006977 (Version 2)
Quarter: 2022Q3

REPORT INFORMATION
  Report Type: Report from Study
  Country: US (occurrence: US)
  Receive Date: 20220625
  Receipt Date: 20220718
  Transmission Date: 20221027
  Serious: Yes (Other)
  Sender: FDA-Public Use
  Company Number: US-BRISTOL-MYERS SQUIBB COMPANY-2022-052351

PATIENT
  Age: 79 Year
  Sex: Female
  Weight: 90.72 kg

DRUGS (1)
  1. POMALYST [Suspect]
     Active Substance: POMALIDOMIDE
     Indication: Plasma cell myeloma
     Dosage: DAILY 21 DAYS?7 DAY REST PERIOD
     Route: 048
     Dates: start: 20200228

REACTIONS (4)
  - Full blood count decreased [Unknown]
  - Drug ineffective [Unknown]
  - Arthropathy [Unknown]
  - Plasma cell myeloma recurrent [Unknown]
